FAERS Safety Report 4334992-6 (Version None)
Quarter: 2004Q2

REPORT INFORMATION
  Report Type: 
  Country: None (occurrence: None)
  Receive Date: 20040408
  Receipt Date: 20040330
  Transmission Date: 20050107
  Serious: Yes (Other)
  Sender: FDA-Public Use
  Company Number: US-ROCHE-363387

PATIENT
  Age: 40 Year
  Sex: Female
  Weight: 98 kg

DRUGS (5)
  1. PEGASYS [Suspect]
     Indication: HEPATITIS C
     Route: 058
  2. GRISEOFULVIN [Suspect]
     Indication: TINEA CAPITIS
     Dosage: ADMINISTERED QD.
     Route: 048
     Dates: start: 20040226, end: 20040326
  3. ATENOLOL [Concomitant]
     Indication: HYPERTENSION
     Dosage: REPORTED AS ATENOLOL 25 MG.
     Route: 048
  4. LEXAPRO [Concomitant]
     Indication: DEPRESSION
     Dosage: ADMINISTERED QD.
     Route: 048
     Dates: start: 20040130
  5. IBUPROFEN [Concomitant]
     Indication: PAIN
     Dosage: ADMINISTERED QD PRN.
     Route: 048
     Dates: start: 20040227

REACTIONS (5)
  - ANAEMIA [None]
  - PARAESTHESIA [None]
  - PLATELET COUNT DECREASED [None]
  - VITAMIN B12 DECREASED [None]
  - WHITE BLOOD CELL COUNT DECREASED [None]
